FAERS Safety Report 14321927 (Version 1)
Quarter: 2017Q4

REPORT INFORMATION
  Report Type: Spontaneous
  Country: CH (occurrence: CH)
  Receive Date: 20171225
  Receipt Date: 20171225
  Transmission Date: 20180321
  Serious: Yes (Other)
  Sender: FDA-Public Use
  Company Number: CH-ROCHE-2041322

PATIENT
  Sex: Male

DRUGS (22)
  1. URSOFALK [Concomitant]
     Active Substance: URSODIOL
     Route: 065
  2. GABAPENTIN. [Interacting]
     Active Substance: GABAPENTIN
     Indication: PRODUCT USED FOR UNKNOWN INDICATION
     Route: 065
     Dates: start: 201603
  3. BELOC ZOK [Interacting]
     Active Substance: METOPROLOL SUCCINATE
     Indication: PRODUCT USED FOR UNKNOWN INDICATION
     Route: 065
  4. ACTEMRA [Suspect]
     Active Substance: TOCILIZUMAB
     Indication: PRODUCT USED FOR UNKNOWN INDICATION
     Route: 042
     Dates: start: 20160902, end: 20170912
  5. MIRABEGRON [Interacting]
     Active Substance: MIRABEGRON
     Indication: PRODUCT USED FOR UNKNOWN INDICATION
     Route: 065
     Dates: start: 201702
  6. BETMIGA [Interacting]
     Active Substance: MIRABEGRON
     Indication: PRODUCT USED FOR UNKNOWN INDICATION
     Route: 065
     Dates: start: 201702
  7. BETMIGA [Interacting]
     Active Substance: MIRABEGRON
     Route: 065
     Dates: start: 201608, end: 201611
  8. PANTOPRAZOL [Concomitant]
     Active Substance: PANTOPRAZOLE SODIUM
     Route: 065
  9. BELOC ZOK [Interacting]
     Active Substance: METOPROLOL SUCCINATE
     Route: 065
     Dates: start: 2014, end: 201603
  10. PREDNISON [Concomitant]
     Active Substance: PREDNISONE
     Route: 065
  11. XARELTO [Concomitant]
     Active Substance: RIVAROXABAN
     Route: 065
  12. SELIPRAN [Concomitant]
     Active Substance: PRAVASTATIN SODIUM
     Route: 065
  13. SANDIMMUN [Concomitant]
     Active Substance: CYCLOSPORINE
     Route: 065
  14. JANUVIA [Concomitant]
     Active Substance: SITAGLIPTIN PHOSPHATE
     Route: 065
  15. LIPANTHYL [Concomitant]
     Active Substance: FENOFIBRATE
     Route: 065
     Dates: start: 201604, end: 20170616
  16. VIAGRA [Concomitant]
     Active Substance: SILDENAFIL CITRATE
     Route: 065
     Dates: start: 201608, end: 201702
  17. CIALIS [Interacting]
     Active Substance: TADALAFIL
     Indication: PRODUCT USED FOR UNKNOWN INDICATION
     Route: 065
     Dates: start: 201411, end: 201604
  18. NOPIL FORTE [Concomitant]
     Active Substance: SULFAMETHOXAZOLE\TRIMETHOPRIM
     Route: 065
  19. VALTREX [Concomitant]
     Active Substance: VALACYCLOVIR HYDROCHLORIDE
     Route: 065
  20. FLUCONAZOL [Concomitant]
     Active Substance: FLUCONAZOLE
     Route: 065
  21. TOREM [Concomitant]
     Active Substance: TORSEMIDE
     Route: 065
  22. TRIATEC (SWITZERLAND) [Concomitant]
     Route: 065

REACTIONS (2)
  - Drug interaction [Recovered/Resolved]
  - Dyspnoea [Recovered/Resolved with Sequelae]

NARRATIVE: CASE EVENT DATE: 2016
